FAERS Safety Report 17374515 (Version 1)
Quarter: 2020Q1

REPORT INFORMATION
  Report Type: Spontaneous
  Country: DE (occurrence: DE)
  Receive Date: 20200205
  Receipt Date: 20200205
  Transmission Date: 20200409
  Serious: Yes (Hospitalization)
  Sender: FDA-Public Use
  Company Number: NVSC2020DE025827

PATIENT
  Age: 9 Year
  Sex: Female
  Weight: 27 kg

DRUGS (4)
  1. AMOXICILLIN. [Suspect]
     Active Substance: AMOXICILLIN
     Indication: TONSILLITIS
     Dosage: UNK
     Route: 065
     Dates: end: 20190315
  2. PREDNISOLON [Concomitant]
     Active Substance: PREDNISOLONE
     Indication: HYPERSENSITIVITY
     Dosage: 100 MG
     Route: 042
     Dates: start: 20190317, end: 20190317
  3. FENISTIL [Concomitant]
     Active Substance: DIMETHINDENE
     Indication: HYPERSENSITIVITY
     Dosage: 2 MG
     Route: 042
     Dates: start: 20190317, end: 20190317
  4. FENISTIL [Concomitant]
     Active Substance: DIMETHINDENE
     Dosage: 15 GTT
     Route: 048
     Dates: start: 20190317, end: 20190317

REACTIONS (6)
  - Gastrointestinal pain [Recovered/Resolved]
  - Rash [Recovered/Resolved]
  - Loss of consciousness [Recovered/Resolved]
  - Cardiovascular disorder [Recovered/Resolved]
  - Hypersensitivity [Recovered/Resolved]
  - Pruritus [Recovered/Resolved]

NARRATIVE: CASE EVENT DATE: 20190317
